FAERS Safety Report 14549862 (Version 1)
Quarter: 2018Q1

REPORT INFORMATION
  Report Type: Report from Study
  Country: US (occurrence: US)
  Receive Date: 20180219
  Receipt Date: 20180219
  Transmission Date: 20180509
  Serious: No
  Sender: FDA-Public Use
  Company Number: US-ACADIA PHARMACEUTICALS INC.-ACA-2017-006205

PATIENT
  Age: 73 Year
  Sex: Male
  Weight: 83.9 kg

DRUGS (6)
  1. NUPLAZID [Suspect]
     Active Substance: PIMAVANSERIN TARTRATE
     Indication: PARKINSON^S DISEASE PSYCHOSIS
  2. CARBIDOPA/LEVODOPA 25/100 [Concomitant]
     Active Substance: CARBIDOPA\LEVODOPA
     Dosage: 25/100MG, 1.5 TAB, 3PM AND HS
  3. MIRALAX [Concomitant]
     Active Substance: POLYETHYLENE GLYCOL 3350
     Indication: PARKINSON^S DISEASE
     Dosage: 0.5 MG, BID
     Route: 048
  4. NUPLAZID [Suspect]
     Active Substance: PIMAVANSERIN TARTRATE
     Indication: DELUSION
  5. CARBIDOPA/LEVODOPA 25/100 [Concomitant]
     Active Substance: CARBIDOPA\LEVODOPA
     Indication: PARKINSON^S DISEASE
     Dosage: 25/100MG, 2 TAB, 7 AND 11AM
     Route: 048
  6. NUPLAZID [Suspect]
     Active Substance: PIMAVANSERIN TARTRATE
     Indication: HALLUCINATION
     Dosage: 34 MG, QD
     Route: 048
     Dates: start: 20171102, end: 20171108

REACTIONS (8)
  - Feeling abnormal [Unknown]
  - Abnormal dreams [Unknown]
  - Confusional state [Unknown]
  - Incontinence [Unknown]
  - Eructation [Unknown]
  - Psychomotor hyperactivity [Unknown]
  - Insomnia [Unknown]
  - Hallucination [Unknown]

NARRATIVE: CASE EVENT DATE: 20171103
